FAERS Safety Report 24315200 (Version 2)
Quarter: 2024Q3

REPORT INFORMATION
  Report Type: Spontaneous
  Country: FR (occurrence: FR)
  Receive Date: 20240913
  Receipt Date: 20240920
  Transmission Date: 20241016
  Serious: Yes (Other)
  Sender: IDORSIA PHARMACEUTICALS
  Company Number: FR-IDORSIA-008446-2024-FR

PATIENT
  Age: 74 Year
  Sex: Male
  Weight: 93 kg

DRUGS (8)
  1. QUVIVIQ [Suspect]
     Active Substance: DARIDOREXANT
     Indication: Insomnia
     Dosage: 50 MG, QD
     Route: 048
     Dates: start: 20240712, end: 20240714
  2. ATORVASTATIN [Concomitant]
     Active Substance: ATORVASTATIN
  3. Previscan [Concomitant]
  4. ZOLPIDEM [Concomitant]
     Active Substance: ZOLPIDEM TARTRATE
  5. BISOPROLOL [Concomitant]
     Active Substance: BISOPROLOL\BISOPROLOL FUMARATE
  6. PERINDOPRIL [Concomitant]
     Active Substance: PERINDOPRIL
  7. AMLODIPINE [Concomitant]
     Active Substance: AMLODIPINE BESYLATE
  8. AMIODARONE [Concomitant]
     Active Substance: AMIODARONE

REACTIONS (5)
  - Hallucination [Recovered/Resolved]
  - Anxiety [Recovered/Resolved]
  - Confusional state [Recovered/Resolved]
  - Speech disorder [Recovered/Resolved]
  - Disorientation [Recovered/Resolved]

NARRATIVE: CASE EVENT DATE: 20240713
